FAERS Safety Report 9347003 (Version 1)
Quarter: 2013Q2

REPORT INFORMATION
  Report Type: Spontaneous
  Country: AU (occurrence: AU)
  Receive Date: 20130613
  Receipt Date: 20130613
  Transmission Date: 20140414
  Serious: Yes (Death)
  Sender: FDA-Public Use
  Company Number: AU-ROXANE LABORATORIES, INC.-2013-RO-00942RO

PATIENT
  Age: 82 Year
  Sex: Female

DRUGS (2)
  1. CITALOPRAM [Suspect]
  2. TRAMADOL [Suspect]

REACTIONS (2)
  - Pulmonary fibrosis [Fatal]
  - Cardiac failure congestive [Fatal]
